FAERS Safety Report 8862984 (Version 1)
Quarter: 2012Q4

REPORT INFORMATION
  Report Type: 
  Country: US (occurrence: US)
  Receive Date: 20121026
  Receipt Date: 20121026
  Transmission Date: 20130627
  Serious: No
  Sender: FDA-Public Use
  Company Number: US-ALLERGAN-1203280US

PATIENT
  Sex: Female

DRUGS (1)
  1. ALPHAGAN P [Suspect]
     Indication: INTRAOCULAR PRESSURE
     Dosage: 2 Gtt, bid
     Route: 047
     Dates: start: 20120306

REACTIONS (2)
  - Laceration [Recovering/Resolving]
  - Product outer packaging issue [None]
